FAERS Safety Report 21190217 (Version 2)
Quarter: 2022Q4

REPORT INFORMATION
  Report Type: Report from Study
  Country: US (occurrence: US)
  Receive Date: 20220809
  Receipt Date: 20221213
  Transmission Date: 20230113
  Serious: Yes (Hospitalization)
  Sender: FDA-Public Use
  Company Number: US-PFIZER INC-PV202200038441

PATIENT
  Age: 70 Year
  Sex: Female
  Weight: 56.4 kg

DRUGS (13)
  1. BINIMETINIB [Suspect]
     Active Substance: BINIMETINIB
     Indication: Adenoid cystic carcinoma
     Dosage: 15 MG, 2X/DAY [30.0 MILLIGRAM(S) (15 MILLIGRAM(S), 1 IN 12 HOUR)]
     Route: 048
     Dates: start: 20220509, end: 20220727
  2. FUTIBATINIB [Suspect]
     Active Substance: FUTIBATINIB
     Indication: Adenoid cystic carcinoma
     Dosage: 16 MG, 1X/DAY [16.0 MILLIGRAM(S) (16 MILLIGRAM(S), 1 IN 1 DAY)]
     Route: 048
     Dates: start: 20220517, end: 20220727
  3. SEVELAMER [Concomitant]
     Active Substance: SEVELAMER
     Indication: Hyperphosphataemia
     Dosage: 1600 MG, 3X/DAY (4800 MILLIGRAM(S) (1600 MILLIGRAM(S), 1 IN 8 HOUR))
     Route: 048
     Dates: start: 20220601
  4. OMEPRAZOLE [Concomitant]
     Active Substance: OMEPRAZOLE
     Indication: Gastrooesophageal reflux disease
     Dosage: 20 MG, 1X/DAY (20.0 MILLIGRAM(S) (20 MILLIGRAM(S), 1 IN 24 HOUR))
     Route: 048
     Dates: start: 2013
  5. ATORVASTATIN [Concomitant]
     Active Substance: ATORVASTATIN
     Indication: Hyperlipidaemia
     Dosage: 40 MG, 1X/DAY (40.0 MILLIGRAM(S) (40 MILLIGRAM(S), 1 IN 1 DAY)
     Route: 048
     Dates: start: 20210721
  6. BACLOFEN [Concomitant]
     Active Substance: BACLOFEN
     Indication: Back pain
     Dosage: 5 MG, 3X/DAY (15.0 MILLIGRAM(S) (5 MILLIGRAM(S), 1 IN 8 HOUR)
     Route: 038
     Dates: start: 20211014
  7. CITALOPRAM [Concomitant]
     Active Substance: CITALOPRAM HYDROBROMIDE
     Indication: Depression
     Dosage: 20 MG, 1X/DAY (20.0 MILLIGRAM(S) (20 MILLIGRAM(S), 1 IN 1 DAY)
     Route: 048
     Dates: start: 20160412
  8. GABAPENTIN [Concomitant]
     Active Substance: GABAPENTIN
     Indication: Back pain
     Dosage: 300 MG, 3X/DAY (900.0 MILLIGRAM(S) (300 MILLIGRAM(S), 1 IN 8 HOUR)
     Route: 048
     Dates: start: 20160706
  9. TRAZODONE [Concomitant]
     Active Substance: TRAZODONE HYDROCHLORIDE
     Indication: Depression
     Dosage: 100 MG (100 MILLIGRAM(S))
     Route: 048
     Dates: start: 20160412
  10. VALACYCLOVIR [Concomitant]
     Active Substance: VALACYCLOVIR HYDROCHLORIDE
     Indication: Herpes virus infection
     Dosage: 500 MG, 1X/DAY (500.0 MILLIGRAM(S) (500 MILLIGRAM(S), 1 IN 24 HOUR)
     Route: 048
     Dates: start: 2013
  11. DEXAMETHASONE [Concomitant]
     Active Substance: DEXAMETHASONE
     Indication: Stomatitis
     Dosage: 10 ML (10 MILLILITRE(S))
     Route: 048
     Dates: start: 20220725
  12. DULCOLAX (BISACODYL) [Concomitant]
     Active Substance: BISACODYL
     Indication: Constipation
     Dosage: UNK
     Route: 048
     Dates: start: 20220523
  13. MAGNESIUM CITRATE [Concomitant]
     Active Substance: MAGNESIUM CITRATE
     Indication: Constipation
     Dosage: UNK
     Route: 048
     Dates: start: 20220606

REACTIONS (2)
  - Hypotension [Recovered/Resolved]
  - Dehydration [Recovered/Resolved]

NARRATIVE: CASE EVENT DATE: 20220727
